FAERS Safety Report 9500255 (Version 3)
Quarter: 2013Q4

REPORT INFORMATION
  Report Type: Spontaneous
  Country: US (occurrence: None)
  Receive Date: 20130107
  Receipt Date: 20131226
  Transmission Date: 20140711
  Serious: Yes (Other)
  Sender: FDA-Public Use
  Company Number: PHEH2012US022850

PATIENT
  Age: 61 Year
  Sex: Female

DRUGS (11)
  1. GILENYA [Suspect]
     Indication: MULTIPLE SCLEROSIS
     Route: 048
     Dates: start: 20120702
  2. PANTOPRAZOLE SODIUM (PANTOPRAZOLE SODIUM SESQUIHYDRATE) [Concomitant]
  3. ALENDRONATE SODIUM (ALENDRONATE SODIUM) [Concomitant]
  4. CIPROFLOXACIN HYDROCHLORIDE (CIPROFLOXACIN HYDROCHLORIDEE) [Concomitant]
  5. PROPRANOLOL (PROPRANOLOL) [Concomitant]
  6. VITAMIN B12 (CYANOCOBALAMIN) [Concomitant]
  7. MULTIVITAMINS (ASCORBIC ACID, ERGOCALCIFEROL, FOLIC ACID, NICOTINAMIDE, PANTHENOL, RETINOL, RIBOFLAVIN, THIAMINE HYDROCHLORIDE) [Concomitant]
  8. CITRACAL + D (CALCIUM CITRATE, ERGOCALCIFEROL) [Concomitant]
  9. NITROFURANTOIN [Concomitant]
  10. VITAMIN D (ERGOCALCIFEROL) [Concomitant]
  11. URIBEL (HYOSCYAMINE SULFATE, METHENAMINE, METHYLTHIONINIUM CHLORIDE, PHENYL SALICYLATE, SODIUM PHOSPHATE MONOBASIC) [Concomitant]

REACTIONS (1)
  - Crying [None]
